FAERS Safety Report 6867308-1 (Version None)
Quarter: 2010Q3

REPORT INFORMATION
  Report Type: 
  Country: None (occurrence: None)
  Receive Date: 20100722
  Receipt Date: 20100713
  Transmission Date: 20110219
  Serious: Yes (Other)
  Sender: FDA-Public Use
  Company Number: US-JNJCH-2010016624

PATIENT
  Age: 9 Year
  Sex: Female
  Weight: 44 kg

DRUGS (1)
  1. BENADRYL [Suspect]
     Indication: EXPOSURE TO TOXIC AGENT
     Dosage: TEXT:ONE TABLET ONCE
     Route: 048
     Dates: start: 20100703, end: 20100703

REACTIONS (2)
  - HYPERSENSITIVITY [None]
  - OFF LABEL USE [None]
